FAERS Safety Report 18977189 (Version 1)
Quarter: 2021Q1

REPORT INFORMATION
  Report Type: Spontaneous
  Country: GB (occurrence: GB)
  Receive Date: 20210306
  Receipt Date: 20210306
  Transmission Date: 20210420
  Serious: Yes (Disabling, Other)
  Sender: FDA-Public Use
  Company Number: GB-ACCORD-218871

PATIENT
  Age: 45 Year
  Sex: Female
  Weight: 90 kg

DRUGS (5)
  1. CODEINE [Concomitant]
     Active Substance: CODEINE
     Dosage: 1 UP TO 4 TIMES A DAY WHEN REQUIRED FOR SEVERE ...
     Dates: start: 20210118, end: 20210215
  2. TRAMADOL. [Concomitant]
     Active Substance: TRAMADOL
     Dosage: TAKE ONE TWICE DAILY, CAN INCREASE TO TWO TWICE DAILY IF NEEDED
     Dates: start: 20210202
  3. OMEPRAZOLE. [Concomitant]
     Active Substance: OMEPRAZOLE
     Dates: start: 20210202
  4. MORPHINE [Concomitant]
     Active Substance: MORPHINE
     Indication: PAIN
     Dates: start: 20210118, end: 20210119
  5. SERTRALINE [Suspect]
     Active Substance: SERTRALINE HYDROCHLORIDE
     Indication: PRODUCT USED FOR UNKNOWN INDICATION
     Dates: start: 20210125, end: 20210222

REACTIONS (2)
  - Tremor [Recovering/Resolving]
  - Speech disorder [Recovering/Resolving]

NARRATIVE: CASE EVENT DATE: 20210222
